FAERS Safety Report 11242766 (Version 1)
Quarter: 2015Q3

REPORT INFORMATION
  Report Type: Spontaneous
  Country: BE (occurrence: None)
  Receive Date: 20150702
  Receipt Date: 20150702
  Transmission Date: 20151125
  Serious: Yes (Life-Threatening, Other)
  Sender: FDA-Public Use
  Company Number: 2015BE0305

PATIENT
  Age: 21 Year
  Sex: Female

DRUGS (1)
  1. ORFADIN [Suspect]
     Active Substance: NITISINONE
     Indication: TYROSINAEMIA
     Dosage: 72 MG ((36 MG,2 IN 1 D)
     Route: 048
     Dates: start: 199312

REACTIONS (3)
  - Depression [None]
  - Treatment noncompliance [None]
  - Suicide attempt [None]

NARRATIVE: CASE EVENT DATE: 2014
